FAERS Safety Report 13169392 (Version 1)
Quarter: 2017Q1

REPORT INFORMATION
  Report Type: Report from Study
  Country: CA (occurrence: CA)
  Receive Date: 20170201
  Receipt Date: 20170201
  Transmission Date: 20170428
  Serious: Yes (Hospitalization, Other)
  Sender: FDA-Public Use
  Company Number: CA-ROCHE-ITM201411IM007777

PATIENT
  Sex: Male
  Weight: 71.7 kg

DRUGS (4)
  1. ESBRIET [Suspect]
     Active Substance: PIRFENIDONE
     Route: 048
  2. PREDNISONE. [Concomitant]
     Active Substance: PREDNISONE
  3. ESBRIET [Suspect]
     Active Substance: PIRFENIDONE
     Indication: IDIOPATHIC PULMONARY FIBROSIS
     Route: 048
     Dates: start: 20140825
  4. LEVOCARB [Concomitant]
     Active Substance: CARBIDOPA\LEVODOPA

REACTIONS (7)
  - Lung infection [Unknown]
  - Liver function test abnormal [Not Recovered/Not Resolved]
  - Parkinson^s disease [Unknown]
  - General physical health deterioration [Unknown]
  - Dyspnoea [Unknown]
  - Respiratory disorder [Unknown]
  - Oxygen saturation decreased [Unknown]
